FAERS Safety Report 12130024 (Version 1)
Quarter: 2016Q1

REPORT INFORMATION
  Report Type: Spontaneous
  Country: US (occurrence: US)
  Receive Date: 20160229
  Receipt Date: 20160229
  Transmission Date: 20160526
  Serious: No
  Sender: FDA-Public Use
  Company Number: US-ACORDA-ACO_23430_2010

PATIENT
  Age: 58 Year
  Sex: Female
  Weight: 56 kg

DRUGS (4)
  1. AMITRIPTYLINE [Concomitant]
     Active Substance: AMITRIPTYLINE
     Dosage: DF
  2. AMPYRA [Suspect]
     Active Substance: DALFAMPRIDINE
     Indication: MULTIPLE SCLEROSIS
     Dosage: 10 MG, BID
     Route: 048
     Dates: start: 201009
  3. KLONOPIN [Concomitant]
     Active Substance: CLONAZEPAM
     Dosage: DF
  4. COPAXONE [Concomitant]
     Active Substance: GLATIRAMER ACETATE
     Dosage: DF

REACTIONS (5)
  - Nausea [Recovered/Resolved]
  - Oropharyngeal pain [Recovering/Resolving]
  - Constipation [Recovering/Resolving]
  - Upper respiratory tract infection [Unknown]
  - Asthenia [Recovering/Resolving]

NARRATIVE: CASE EVENT DATE: 20100930
